FAERS Safety Report 20945467 (Version 1)
Quarter: 2022Q2

REPORT INFORMATION
  Report Type: Spontaneous
  Country: FR (occurrence: FR)
  Receive Date: 20220610
  Receipt Date: 20220610
  Transmission Date: 20220721
  Serious: Yes (Other)
  Sender: FDA-Public Use
  Company Number: None

PATIENT

DRUGS (11)
  1. VALACYCLOVIR HYDROCHLORIDE [Suspect]
     Active Substance: VALACYCLOVIR HYDROCHLORIDE
     Indication: Product used for unknown indication
     Dosage: 500 MG, QD (1 TAB/DAY)
     Route: 048
     Dates: start: 20211230, end: 2022
  2. PREDNISONE [Suspect]
     Active Substance: PREDNISONE
     Indication: Immune thrombocytopenia
     Dosage: 80 MG, QD (80 MG/ FOR 3 WEEKS THEN RAPID DECREASE)
     Route: 065
     Dates: start: 20211227, end: 202201
  3. BACTRIM [Suspect]
     Active Substance: SULFAMETHOXAZOLE\TRIMETHOPRIM
     Indication: Product used for unknown indication
     Dosage: 1 DF (3 WEEK) (1 TAB 3X / WEEK. MONDAYS, WEDNESDAYS AND FRIDAYS?)
     Route: 048
     Dates: start: 20211230, end: 2022
  4. COMIRNATY [Suspect]
     Active Substance: TOZINAMERAN
     Indication: COVID-19 immunisation
     Dosage: 1 DF (R1)
     Route: 030
     Dates: start: 20211120, end: 20211120
  5. LANSOPRAZOLE [Concomitant]
     Active Substance: LANSOPRAZOLE
     Indication: Product used for unknown indication
     Dosage: 15 MG, QD (1-0-0)
     Route: 048
  6. ROSUVASTATIN [Concomitant]
     Active Substance: ROSUVASTATIN
     Indication: Hypercholesterolaemia
     Dosage: UNK
     Route: 048
  7. SPIRIVA [Concomitant]
     Active Substance: TIOTROPIUM BROMIDE MONOHYDRATE
     Indication: Product used for unknown indication
     Dosage: UNK
     Route: 055
  8. TELMISARTAN [Concomitant]
     Active Substance: TELMISARTAN
     Indication: Hypertension
     Dosage: UNK
     Route: 048
  9. LEUCOVORIN CALCIUM [Concomitant]
     Active Substance: LEUCOVORIN CALCIUM
     Indication: Product used for unknown indication
     Dosage: 25 MG, WE (1 X / WEEK ON SUNDAY)
     Route: 048
     Dates: start: 20211230, end: 2022
  10. CACIT VIT D3 [Concomitant]
     Indication: Product used for unknown indication
     Dosage: 1 DF, QD (1 SACHET / DAY)
     Route: 048
     Dates: start: 20211230, end: 2022
  11. TAMSULOSIN HYDROCHLORIDE [Concomitant]
     Active Substance: TAMSULOSIN HYDROCHLORIDE
     Indication: Benign prostatic hyperplasia
     Dosage: 0.4 G, QD (0-0-1)
     Route: 048

REACTIONS (1)
  - Deep vein thrombosis [Recovering/Resolving]

NARRATIVE: CASE EVENT DATE: 20220518
